FAERS Safety Report 7894367-X (Version None)
Quarter: 2011Q4

REPORT INFORMATION
  Report Type: 
  Country: None (occurrence: None)
  Receive Date: 20111104
  Receipt Date: 20111029
  Transmission Date: 20120403
  Serious: Yes (Hospitalization)
  Sender: FDA-Public Use
  Company Number: US-ROCHE-1008540

PATIENT
  Age: 55 Year
  Sex: Female

DRUGS (4)
  1. AVASTIN [Suspect]
     Indication: OVARIAN CANCER
     Dosage: MOST RECENT DOSE PRIOR TO SAE 23/SEP/2011
     Route: 042
     Dates: start: 20110624
  2. PACLITAXEL [Suspect]
     Indication: OVARIAN CANCER
     Dosage: MOST RECENT DOSE PRIOR TO SAE 23/SEP/2011
     Route: 042
     Dates: start: 20110624
  3. CHEMOTHERAPY (UNK INGREDIENTS) [Concomitant]
     Dates: start: 20090501, end: 20090901
  4. CARBOPLATIN [Suspect]
     Indication: OVARIAN CANCER
     Dosage: AUC 5, MOST RECENT DOSE PRIOR TO SAE 23/SEP/2011
     Route: 042
     Dates: start: 20110624

REACTIONS (3)
  - HYPOPHOSPHATAEMIA [None]
  - DEVICE RELATED INFECTION [None]
  - URINARY TRACT INFECTION [None]
